FAERS Safety Report 8188462-8 (Version None)
Quarter: 2012Q1

REPORT INFORMATION
  Report Type: 
  Country: None (occurrence: None)
  Receive Date: 20120306
  Receipt Date: 20120301
  Transmission Date: 20120608
  Serious: Yes (Hospitalization)
  Sender: FDA-Public Use
  Company Number: PHEH2012US004963

PATIENT
  Sex: Male

DRUGS (1)
  1. TOBI [Suspect]
     Indication: CYSTIC FIBROSIS
     Dosage: 300 MG, TWICE DAILY 28 DAYS ON AND 28 DAYS OFF

REACTIONS (1)
  - INFECTIVE PULMONARY EXACERBATION OF CYSTIC FIBROSIS [None]
